FAERS Safety Report 12603250 (Version 1)
Quarter: 2016Q3

REPORT INFORMATION
  Report Type: Report from Study
  Country: DE (occurrence: FR)
  Receive Date: 20160728
  Receipt Date: 20160728
  Transmission Date: 20161109
  Serious: Yes (Hospitalization)
  Sender: FDA-Public Use
  Company Number: DE-ACTELION-A-NJ2016-140023

PATIENT
  Age: 66 Year
  Sex: Male

DRUGS (2)
  1. VENTAVIS [Suspect]
     Active Substance: ILOPROST
     Indication: PULMONARY ARTERIAL HYPERTENSION
     Dosage: 9ID
     Route: 055
  2. VENTAVIS [Suspect]
     Active Substance: ILOPROST
     Dosage: 6ID
     Route: 055

REACTIONS (11)
  - Coma [Unknown]
  - Tongue haemorrhage [Unknown]
  - Conjunctivitis [Unknown]
  - Ocular hyperaemia [Unknown]
  - Subdural haematoma [Unknown]
  - Headache [Unknown]
  - Dysuria [Unknown]
  - Tongue injury [Unknown]
  - Tongue ulceration [Unknown]
  - Paraesthesia oral [Unknown]
  - Oral discomfort [Unknown]

NARRATIVE: CASE EVENT DATE: 2016
